FAERS Safety Report 19570098 (Version 2)
Quarter: 2021Q3

REPORT INFORMATION
  Report Type: Spontaneous
  Country: US (occurrence: US)
  Receive Date: 20210716
  Receipt Date: 20210916
  Transmission Date: 20211014
  Serious: No
  Sender: FDA-Public Use
  Company Number: US-GLAXOSMITHKLINE-US2021AMR151484

PATIENT
  Age: 69 Year
  Sex: Female

DRUGS (2)
  1. FLOLAN [Suspect]
     Active Substance: EPOPROSTENOL SODIUM
     Indication: PULMONARY ARTERIAL HYPERTENSION
     Dosage: 34 NG/KG/MIN
     Dates: start: 20201201
  2. FLOLAN DILUENT PH 12 [Suspect]
     Active Substance: GLYCINE\MANNITOL\SODIUM CHLORIDE
     Indication: PULMONARY ARTERIAL HYPERTENSION
     Dosage: UNK
     Dates: start: 20210113

REACTIONS (8)
  - Pain [Recovered/Resolved]
  - Malaise [Recovered/Resolved]
  - Respiration abnormal [Recovered/Resolved]
  - Localised oedema [Not Recovered/Not Resolved]
  - Fatigue [Recovered/Resolved]
  - Oedema peripheral [Not Recovered/Not Resolved]
  - Mobility decreased [Not Recovered/Not Resolved]
  - Device use issue [Recovered/Resolved]

NARRATIVE: CASE EVENT DATE: 20210706
